FAERS Safety Report 6695824-4 (Version None)
Quarter: 2010Q2

REPORT INFORMATION
  Report Type: 
  Country: None (occurrence: None)
  Receive Date: 20100423
  Receipt Date: 20100423
  Transmission Date: 20101027
  Serious: Yes (Other)
  Sender: FDA-Public Use
  Company Number: None

PATIENT
  Age: 41 Year
  Sex: Female
  Weight: 97.5234 kg

DRUGS (1)
  1. ZEMA-PAK 13 DAY TABLMAC 1.5 MG MACOVEN PHARMAC [Suspect]
     Dosage: 6 PILLS FIRST5 5 PILLS NEXT 2 DAYS
     Dates: start: 20100401, end: 20100409

REACTIONS (16)
  - BURNING SENSATION [None]
  - CHAPPED LIPS [None]
  - CRYING [None]
  - DEPRESSION [None]
  - DRY MOUTH [None]
  - FEELING OF BODY TEMPERATURE CHANGE [None]
  - HYPERHIDROSIS [None]
  - INSOMNIA [None]
  - IRRITABILITY [None]
  - MANIA [None]
  - MOOD ALTERED [None]
  - MYALGIA [None]
  - NIGHT SWEATS [None]
  - OEDEMA PERIPHERAL [None]
  - PAIN IN EXTREMITY [None]
  - SKIN EXFOLIATION [None]
